FAERS Safety Report 5065037-0 (Version None)
Quarter: 2006Q3

REPORT INFORMATION
  Report Type: 
  Country: None (occurrence: None)
  Receive Date: 20060706
  Receipt Date: 20060405
  Transmission Date: 20061208
  Serious: No
  Sender: FDA-Public Use
  Company Number: 200612182BWH

PATIENT
  Sex: Male

DRUGS (3)
  1. LEVITRA [Suspect]
     Indication: ATROPHY
     Dosage: 50 MG, TOTAL DAILY, ORAL
     Route: 048
  2. LEVITRA [Suspect]
     Indication: PENIS DISORDER
     Dosage: 50 MG, TOTAL DAILY, ORAL
     Route: 048
  3. LEVITRA [Suspect]
     Indication: PROPHYLAXIS
     Dosage: 50 MG, TOTAL DAILY, ORAL
     Route: 048

REACTIONS (1)
  - NO ADVERSE DRUG EFFECT [None]
